FAERS Safety Report 25228245 (Version 1)
Quarter: 2025Q2

REPORT INFORMATION
  Report Type: Report from Study
  Country: DE (occurrence: DE)
  Receive Date: 20250423
  Receipt Date: 20250423
  Transmission Date: 20250716
  Serious: Yes (Other)
  Sender: UCB
  Company Number: DE-UCBSA-2025015742

PATIENT
  Sex: Female

DRUGS (1)
  1. ZILUCOPLAN [Suspect]
     Active Substance: ZILUCOPLAN
     Indication: Myasthenia gravis
     Dosage: UNK
     Dates: start: 20250305

REACTIONS (10)
  - Myasthenia gravis [Unknown]
  - Infection [Recovered/Resolved]
  - Back pain [Unknown]
  - Panic attack [Unknown]
  - Fatigue [Unknown]
  - Arthralgia [Unknown]
  - Hyperacusis [Unknown]
  - Irritability [Unknown]
  - Infection susceptibility increased [Unknown]
  - Menstruation irregular [Unknown]

NARRATIVE: CASE EVENT DATE: 20250101
